FAERS Safety Report 5339374-6 (Version None)
Quarter: 2007Q2

REPORT INFORMATION
  Report Type: 
  Country: None (occurrence: None)
  Receive Date: 20070525
  Receipt Date: 20070516
  Transmission Date: 20071010
  Serious: Yes (Hospitalization)
  Sender: FDA-Public Use
  Company Number: GXKR2007GB04382

PATIENT
  Age: 28 Year
  Sex: Female

DRUGS (3)
  1. METOCLOPRAMIDE [Suspect]
     Indication: NAUSEA
  2. CONTRACEPTIVES NOS [Concomitant]
  3. METRONIDAZOLE [Concomitant]

REACTIONS (8)
  - DYSTONIA [None]
  - EYE ROLLING [None]
  - HYPERHIDROSIS [None]
  - MUSCLE TIGHTNESS [None]
  - MUSCLE TWITCHING [None]
  - MUSCULOSKELETAL STIFFNESS [None]
  - OCULOGYRATION [None]
  - TACHYCARDIA [None]
